FAERS Safety Report 16999839 (Version 2)
Quarter: 2019Q4

REPORT INFORMATION
  Report Type: Spontaneous
  Country: US (occurrence: US)
  Receive Date: 20191106
  Receipt Date: 20191202
  Transmission Date: 20200122
  Serious: No
  Sender: FDA-Public Use
  Company Number: US-PFIZER INC-2019478514

PATIENT
  Age: 62 Year
  Sex: Female
  Weight: 95.25 kg

DRUGS (1)
  1. ALPRAZOLAM. [Suspect]
     Active Substance: ALPRAZOLAM
     Indication: ANXIETY DISORDER
     Dosage: 1 MG, 2X/DAY
     Route: 048

REACTIONS (1)
  - Memory impairment [Not Recovered/Not Resolved]
